FAERS Safety Report 4974000-7 (Version None)
Quarter: 2006Q2

REPORT INFORMATION
  Report Type: 
  Country: None (occurrence: None)
  Receive Date: 20060417
  Receipt Date: 20060314
  Transmission Date: 20061013
  Serious: Yes (Disabling, Other)
  Sender: FDA-Public Use
  Company Number: US-BRISTOL-MYERS SQUIBB COMPANY-13314240

PATIENT

DRUGS (1)
  1. KENALOG-40 [Suspect]
     Indication: CATARACT OPERATION
     Route: 031

REACTIONS (1)
  - ENDOPHTHALMITIS [None]
